FAERS Safety Report 5087795-1 (Version None)
Quarter: 2006Q3

REPORT INFORMATION
  Report Type: 
  Country: None (occurrence: None)
  Receive Date: 20060824
  Receipt Date: 20060818
  Transmission Date: 20061208
  Serious: Yes (Hospitalization)
  Sender: FDA-Public Use
  Company Number: FR-ROCHE-460079

PATIENT
  Age: 80 Year
  Sex: Male

DRUGS (2)
  1. ROCEPHIN [Suspect]
     Indication: SIGMOIDITIS
     Dosage: FORM REPORTED AS INJECTABLE SOLUTION.
     Route: 042
     Dates: start: 20060519, end: 20060616
  2. FLAGYL I.V. [Concomitant]
     Indication: SIGMOIDITIS
     Route: 048
     Dates: start: 20060519

REACTIONS (3)
  - DIARRHOEA [None]
  - GASTROINTESTINAL HAEMORRHAGE [None]
  - PSEUDOMEMBRANOUS COLITIS [None]
